FAERS Safety Report 8539425-1 (Version None)
Quarter: 2012Q3

REPORT INFORMATION
  Report Type: 
  Country: None (occurrence: None)
  Receive Date: 20120726
  Receipt Date: 20120720
  Transmission Date: 20120928
  Serious: Yes (Hospitalization)
  Sender: FDA-Public Use
  Company Number: JP-009507513-1207JPN008151

PATIENT

DRUGS (6)
  1. PEG-INTRON [Suspect]
     Indication: HEPATITIS C
     Dosage: 1.0MCG/KG/WEEK
     Route: 058
     Dates: start: 20120523, end: 20120529
  2. PEG-INTRON [Suspect]
     Dosage: 0.9MCG/KG/WEEK
     Route: 058
     Dates: start: 20120530, end: 20120604
  3. TELAVIC [Suspect]
     Indication: HEPATITIS C
     Route: 048
     Dates: start: 20120523
  4. REBETOL [Suspect]
     Indication: HEPATITIS C
     Route: 048
     Dates: start: 20120523, end: 20120702
  5. REBETOL [Suspect]
     Route: 048
     Dates: start: 20120703
  6. PEG-INTRON [Suspect]
     Dosage: 0.8MCG/KG/WEEK
     Route: 058
     Dates: start: 20120605

REACTIONS (1)
  - HERPES ZOSTER [None]
